FAERS Safety Report 18050115 (Version 3)
Quarter: 2020Q3

REPORT INFORMATION
  Report Type: Report from Study
  Country: IT (occurrence: IT)
  Receive Date: 20200721
  Receipt Date: 20200812
  Transmission Date: 20201103
  Serious: Yes (Hospitalization)
  Sender: FDA-Public Use
  Company Number: IT-ROCHE-2401332

PATIENT
  Age: 51 Year
  Sex: Female
  Weight: 58 kg

DRUGS (7)
  1. ZOLPIDEM [Concomitant]
     Active Substance: ZOLPIDEM TARTRATE
     Indication: INSOMNIA
     Route: 048
     Dates: start: 20190831
  2. LANSOPRAZOLE. [Concomitant]
     Active Substance: LANSOPRAZOLE
     Route: 048
     Dates: start: 20190831
  3. CALCIUM [Concomitant]
     Active Substance: CALCIUM
     Route: 048
     Dates: start: 20190831
  4. COBIMETINIB. [Suspect]
     Active Substance: COBIMETINIB
     Indication: MALIGNANT MELANOMA
     Dosage: DATE OF LAST DOSE OF COBIMETINIB PRIOR TO SAE ONSET: 26/AUG/2019
     Route: 048
     Dates: start: 20190822
  5. VEMURAFENIB. [Suspect]
     Active Substance: VEMURAFENIB
     Indication: MALIGNANT MELANOMA
     Dosage: DATE OF LAST DOSE OF VEMURAFENIB PRIOR TO SAE ONSET: 30/AUG/2019
     Route: 048
     Dates: start: 20190822, end: 20190831
  6. PREDNISONE. [Concomitant]
     Active Substance: PREDNISONE
     Dates: start: 20191008, end: 20191012
  7. PREDNISONE. [Concomitant]
     Active Substance: PREDNISONE
     Dates: start: 20191013, end: 20191018

REACTIONS (2)
  - Retinal detachment [Recovered/Resolved]
  - Drug reaction with eosinophilia and systemic symptoms [Recovered/Resolved]

NARRATIVE: CASE EVENT DATE: 20190827
